FAERS Safety Report 14202227 (Version 4)
Quarter: 2018Q1

REPORT INFORMATION
  Report Type: Report from Study
  Country: CA (occurrence: CA)
  Receive Date: 20171117
  Receipt Date: 20180112
  Transmission Date: 20180508
  Serious: Yes (Other)
  Sender: FDA-Public Use
  Company Number: PHHY2017CA051653

PATIENT
  Age: 80 Year
  Sex: Male

DRUGS (7)
  1. ILARIS [Suspect]
     Active Substance: CANAKINUMAB
     Indication: FAMILIAL MEDITERRANEAN FEVER
     Dosage: UNK
     Route: 058
     Dates: start: 20170526
  2. ILARIS [Suspect]
     Active Substance: CANAKINUMAB
     Dosage: UNK
     Route: 058
  3. ILARIS [Suspect]
     Active Substance: CANAKINUMAB
     Dosage: UNK
     Route: 065
     Dates: start: 20180105
  4. ILARIS [Suspect]
     Active Substance: CANAKINUMAB
     Dosage: UNK
     Route: 065
     Dates: start: 20171110
  5. ILARIS [Suspect]
     Active Substance: CANAKINUMAB
     Indication: CRYOPYRIN ASSOCIATED PERIODIC SYNDROME
     Dosage: 150 MG, EVERY 8 WEEKS
     Route: 058
     Dates: start: 20170330
  6. ILARIS [Suspect]
     Active Substance: CANAKINUMAB
     Dosage: UNK
     Route: 065
     Dates: start: 20170915
  7. AURO MIRTAZAPINE [Suspect]
     Active Substance: MIRTAZAPINE
     Indication: PRODUCT USED FOR UNKNOWN INDICATION
     Dosage: 1 DF (ONE TABLET ONCE A DAY AS AN ANTIDEPRESSANT), QD
     Route: 065
     Dates: start: 20170417

REACTIONS (41)
  - Aphonia [Recovering/Resolving]
  - Eye oedema [Unknown]
  - Fall [Unknown]
  - Erythema [Recovering/Resolving]
  - Insomnia [Unknown]
  - Peripheral coldness [Unknown]
  - Faeces soft [Unknown]
  - Hot flush [Recovering/Resolving]
  - Blood pressure increased [Unknown]
  - Deafness unilateral [Unknown]
  - Dizziness [Not Recovered/Not Resolved]
  - Gingival pain [Unknown]
  - Cold-stimulus headache [Unknown]
  - Nasopharyngitis [Unknown]
  - Vertigo [Unknown]
  - Swelling face [Unknown]
  - Bruxism [Unknown]
  - Headache [Recovering/Resolving]
  - Headache [Recovered/Resolved]
  - Fatigue [Recovering/Resolving]
  - Feeling abnormal [Unknown]
  - Depression [Unknown]
  - Palpitations [Unknown]
  - Body temperature decreased [Unknown]
  - Speech disorder [Unknown]
  - Dysarthria [Unknown]
  - Back pain [Unknown]
  - Pain in extremity [Unknown]
  - Oral pain [Unknown]
  - Frostbite [Unknown]
  - Myalgia [Unknown]
  - Discomfort [Unknown]
  - Headache [Unknown]
  - Diarrhoea [Recovering/Resolving]
  - Muscle spasms [Unknown]
  - Pruritus [Unknown]
  - Asthenia [Unknown]
  - Dry mouth [Recovering/Resolving]
  - Toothache [Unknown]
  - Balance disorder [Not Recovered/Not Resolved]
  - Chest pain [Recovering/Resolving]

NARRATIVE: CASE EVENT DATE: 20170330
